FAERS Safety Report 17356579 (Version 2)
Quarter: 2020Q1

REPORT INFORMATION
  Report Type: Spontaneous
  Country: PL (occurrence: PL)
  Receive Date: 20200131
  Receipt Date: 20200218
  Transmission Date: 20200409
  Serious: Yes (Hospitalization)
  Sender: FDA-Public Use
  Company Number: PL-ASTRAZENECA-2020SE12060

PATIENT
  Age: 62 Year
  Sex: Male

DRUGS (8)
  1. METFORMIN [Suspect]
     Active Substance: METFORMIN HYDROCHLORIDE
     Dosage: UNK
     Route: 065
  2. EPLERENONE. [Suspect]
     Active Substance: EPLERENONE
     Route: 065
  3. RAMIPRIL. [Suspect]
     Active Substance: RAMIPRIL
     Route: 048
  4. FUROSEMIDE. [Suspect]
     Active Substance: FUROSEMIDE
     Route: 065
  5. ROSUVASTATIN. [Suspect]
     Active Substance: ROSUVASTATIN
     Route: 048
  6. FUROSEMIDE. [Suspect]
     Active Substance: FUROSEMIDE
     Route: 065
  7. BISOPROLOL [Suspect]
     Active Substance: BISOPROLOL
     Route: 065
  8. ACETYLSALICYLIC ACID [Suspect]
     Active Substance: ASPIRIN
     Route: 065

REACTIONS (5)
  - Hypotension [Recovering/Resolving]
  - Drug ineffective [Recovering/Resolving]
  - Tachycardia [Recovering/Resolving]
  - Exercise tolerance decreased [Unknown]
  - Weight decreased [Recovering/Resolving]
